FAERS Safety Report 6953882-3 (Version None)
Quarter: 2010Q3

REPORT INFORMATION
  Report Type: 
  Country: None (occurrence: None)
  Receive Date: 20100829
  Receipt Date: 20100726
  Transmission Date: 20110219
  Serious: No
  Sender: FDA-Public Use
  Company Number: US-ABBOTT-10P-163-0654429-00

PATIENT
  Sex: Female
  Weight: 83.082 kg

DRUGS (5)
  1. NIASPAN [Suspect]
     Indication: HYPERTRIGLYCERIDAEMIA
     Dates: start: 20070101, end: 20100501
  2. LABETALOL HCL [Concomitant]
     Indication: HYPERTENSION
  3. DIOVAN [Concomitant]
     Indication: HYPERTENSION
  4. HYDROCHLOROTHIAZIDE [Concomitant]
     Indication: HYPERTENSION
  5. ACTOS [Concomitant]
     Indication: DIABETES MELLITUS

REACTIONS (6)
  - BLOOD GLUCOSE INCREASED [None]
  - BLOOD PRESSURE INADEQUATELY CONTROLLED [None]
  - BLOOD PRESSURE INCREASED [None]
  - FATIGUE [None]
  - HOT FLUSH [None]
  - WEIGHT INCREASED [None]
